FAERS Safety Report 10389240 (Version 5)
Quarter: 2022Q2

REPORT INFORMATION
  Report Type: Report from Study
  Country: US (occurrence: US)
  Receive Date: 20140818
  Receipt Date: 20220622
  Transmission Date: 20220721
  Serious: Yes (Other)
  Sender: FDA-Public Use
  Company Number: US-AMGEN-USASP2014060694

PATIENT
  Age: 57 Year
  Sex: Female

DRUGS (6)
  1. ENBREL [Suspect]
     Active Substance: ETANERCEPT
     Indication: Rheumatoid arthritis
     Dosage: 50 MILLIGRAM, QWK
     Route: 065
     Dates: start: 20080730
  2. ENBREL [Suspect]
     Active Substance: ETANERCEPT
     Indication: Large granular lymphocytosis
     Dosage: 50 MILLIGRAM, QWK
     Route: 065
  3. ENBREL [Suspect]
     Active Substance: ETANERCEPT
     Dosage: 50 MILLIGRAM, QWK
     Route: 065
  4. ORENCIA [Suspect]
     Active Substance: ABATACEPT
     Indication: Product used for unknown indication
     Dosage: UNK
     Route: 065
  5. METHOTREXATE [Concomitant]
     Active Substance: METHOTREXATE
     Indication: Product used for unknown indication
     Dosage: UNK
     Route: 065
  6. VIBRAMYCIN [Concomitant]
     Active Substance: DOXYCYCLINE
     Indication: Product used for unknown indication
     Dosage: UNK
     Route: 065

REACTIONS (20)
  - Atypical pneumonia [Unknown]
  - Large granular lymphocytosis [Unknown]
  - Rheumatoid arthritis [Not Recovered/Not Resolved]
  - Joint injury [Unknown]
  - Oral candidiasis [Unknown]
  - Injection site swelling [Not Recovered/Not Resolved]
  - Injection site pruritus [Recovered/Resolved]
  - Injection site pain [Not Recovered/Not Resolved]
  - Injection site reaction [Not Recovered/Not Resolved]
  - Injection site erythema [Not Recovered/Not Resolved]
  - Anaemia [Unknown]
  - Hypersensitivity [Not Recovered/Not Resolved]
  - Musculoskeletal stiffness [Recovered/Resolved]
  - Onychoclasis [Not Recovered/Not Resolved]
  - Blood blister [Not Recovered/Not Resolved]
  - Weight decreased [Not Recovered/Not Resolved]
  - Dental caries [Unknown]
  - Incorrect dose administered [Unknown]
  - Product storage error [Unknown]
  - Fatigue [Unknown]

NARRATIVE: CASE EVENT DATE: 20140401
